FAERS Safety Report 4501542-0 (Version None)
Quarter: 2004Q4

REPORT INFORMATION
  Report Type: 
  Country: None (occurrence: None)
  Receive Date: 20041115
  Receipt Date: 20030620
  Transmission Date: 20050328
  Serious: Yes (Death, Hospitalization)
  Sender: FDA-Public Use
  Company Number: US-MERCK-0306USA02641

PATIENT
  Age: 67 Year
  Sex: Female

DRUGS (9)
  1. ZOCOR [Suspect]
     Route: 048
     Dates: end: 20021001
  2. ATROVENT [Concomitant]
     Route: 065
  3. DILTIAZEM HYDROCHLORIDE [Concomitant]
     Route: 065
  4. MAXZIDE [Concomitant]
     Route: 048
  5. ALLEGRA [Concomitant]
     Route: 065
  6. REGLAN [Concomitant]
     Route: 065
  7. KLONOPIN [Concomitant]
     Route: 065
  8. KLONOPIN [Concomitant]
     Route: 065
  9. MIRAPEX [Concomitant]
     Route: 065

REACTIONS (14)
  - ANAEMIA [None]
  - ASTHENIA [None]
  - BRONCHOSPASM [None]
  - CONTUSION [None]
  - DEATH [None]
  - FALL [None]
  - FEELING ABNORMAL [None]
  - HYPOKALAEMIA [None]
  - HYPONATRAEMIA [None]
  - LIMB INJURY [None]
  - MEMORY IMPAIRMENT [None]
  - MOBILITY DECREASED [None]
  - RHABDOMYOLYSIS [None]
  - URINARY TRACT INFECTION [None]
